FAERS Safety Report 9079739 (Version 5)
Quarter: 2013Q1

REPORT INFORMATION
  Report Type: Spontaneous
  Country: FR (occurrence: FR)
  Receive Date: 20130130
  Receipt Date: 20130328
  Transmission Date: 20140127
  Serious: Yes (Hospitalization, Disabling, Other)
  Sender: FDA-Public Use
  Company Number: FR-MERCK-1301FRA012357

PATIENT
  Age: 55 Year
  Sex: Male
  Weight: 150 kg

DRUGS (9)
  1. XELEVIA [Suspect]
     Indication: TYPE 2 DIABETES MELLITUS
     Dosage: 100 MG, QD
     Route: 048
     Dates: start: 20110205, end: 201201
  2. XELEVIA [Suspect]
     Dosage: 100 MG, QD
     Dates: start: 201206, end: 20130120
  3. GLIMEPIRIDE [Concomitant]
     Indication: TYPE 2 DIABETES MELLITUS
     Dosage: 1 DF, UNK
     Dates: start: 20110702, end: 20130120
  4. INEGY [Concomitant]
     Indication: HYPERCHOLESTEROLAEMIA
     Dosage: 1 DF, UNK
     Dates: start: 20110205
  5. APROVEL [Concomitant]
     Indication: HYPERTENSION
     Dosage: 1 DF, UNK
     Dates: start: 2004
  6. TRIATEC (RAMIPRIL) [Concomitant]
     Indication: HYPERTENSION
     Dosage: 1 DF, UNK
     Dates: start: 20070702
  7. METFORMIN [Concomitant]
     Indication: TYPE 2 DIABETES MELLITUS
     Dosage: 3 DF, UNK
     Dates: start: 20071204, end: 20081010
  8. ACTOS [Concomitant]
     Indication: TYPE 2 DIABETES MELLITUS
     Dosage: 1 DF, UNK
     Dates: start: 20081010, end: 20110205
  9. CRESTOR [Concomitant]
     Indication: DYSLIPIDAEMIA
     Dosage: 1 DF, QD
     Dates: start: 20091003, end: 20110205

REACTIONS (2)
  - Pancreatic carcinoma [Not Recovered/Not Resolved]
  - Diarrhoea [Unknown]
